FAERS Safety Report 10396381 (Version 2)
Quarter: 2014Q3

REPORT INFORMATION
  Report Type: Spontaneous
  Country: US (occurrence: None)
  Receive Date: 20130815
  Receipt Date: 20140815
  Transmission Date: 20150326
  Serious: Yes (Other)
  Sender: FDA-Public Use
  Company Number: ADR-2013-00687

PATIENT
  Age: 77 Year
  Sex: Female

DRUGS (3)
  1. CLONIDINE. [Concomitant]
     Active Substance: CLONIDINE
  2. LIORESAL [Suspect]
     Active Substance: BACLOFEN
     Indication: PAIN
  3. MORPHINE [Concomitant]
     Active Substance: MORPHINE

REACTIONS (3)
  - Drug withdrawal syndrome [None]
  - Pocket erosion [None]
  - Pain [None]

NARRATIVE: CASE EVENT DATE: 20130304
